FAERS Safety Report 18202915 (Version 1)
Quarter: 2020Q3

REPORT INFORMATION
  Report Type: Spontaneous
  Country: US (occurrence: US)
  Receive Date: 20200827
  Receipt Date: 20200827
  Transmission Date: 20201103
  Serious: Yes (Death, Other)
  Sender: FDA-Public Use
  Company Number: US-SA-2020SA228933

PATIENT

DRUGS (1)
  1. ZANTAC [Suspect]
     Active Substance: RANITIDINE HYDROCHLORIDE
     Dosage: UNK
     Dates: start: 199901, end: 201711

REACTIONS (3)
  - Hepatic cancer [Fatal]
  - Gallbladder cancer [Fatal]
  - Gastric cancer [Fatal]

NARRATIVE: CASE EVENT DATE: 20171113
